FAERS Safety Report 21618488 (Version 1)
Quarter: 2022Q4

REPORT INFORMATION
  Report Type: Spontaneous
  Country: FR (occurrence: FR)
  Receive Date: 20221119
  Receipt Date: 20221119
  Transmission Date: 20230112
  Serious: Yes (Hospitalization)
  Sender: FDA-Public Use
  Company Number: None

PATIENT
  Age: 8 Year
  Sex: Male

DRUGS (2)
  1. TAFINLAR [Suspect]
     Active Substance: DABRAFENIB MESYLATE
     Indication: Histiocytosis
     Dosage: 20 MG
     Route: 048
     Dates: start: 20221004, end: 20221008
  2. ZELBORAF [Suspect]
     Active Substance: VEMURAFENIB
     Indication: Histiocytosis
     Dosage: 480 MG
     Route: 048
     Dates: start: 20221008

REACTIONS (1)
  - Intracranial pressure increased [Not Recovered/Not Resolved]

NARRATIVE: CASE EVENT DATE: 20221011
